FAERS Safety Report 11423163 (Version 4)
Quarter: 2015Q4

REPORT INFORMATION
  Report Type: Spontaneous
  Country: JP (occurrence: JP)
  Receive Date: 20150827
  Receipt Date: 20151019
  Transmission Date: 20160304
  Serious: Yes (Hospitalization, Other)
  Sender: FDA-Public Use
  Company Number: JP-GLAXOSMITHKLINE INC.-JP2015JPN119442

PATIENT
  Age: 31 Year
  Sex: Female
  Weight: 50 kg

DRUGS (9)
  1. LAMICTAL [Suspect]
     Active Substance: LAMOTRIGINE
     Indication: BIPOLAR DISORDER
     Dosage: 25 MG, QD
     Route: 048
     Dates: start: 20140704, end: 20140803
  2. ZYPREXA [Concomitant]
     Active Substance: OLANZAPINE
     Dosage: 10 MG, QD
     Dates: start: 20140816, end: 20140820
  3. TRADITIONAL CHINESE MEDICINE [Concomitant]
     Active Substance: HERBALS
     Indication: NEUROSIS
     Dosage: 2.5 G, TID
     Dates: start: 20140702, end: 20140822
  4. ZYPREXA [Concomitant]
     Active Substance: OLANZAPINE
     Indication: DEPRESSIVE SYMPTOM
     Dosage: 2.5 MG, QD
     Dates: start: 20140716, end: 20140815
  5. LIMAS [Concomitant]
     Active Substance: LITHIUM CARBONATE
     Indication: AFFECT LABILITY
     Dosage: 1000 MG, QD
     Dates: start: 20140716, end: 20140729
  6. LAMICTAL [Suspect]
     Active Substance: LAMOTRIGINE
     Dosage: 50 MG, QD
     Route: 048
     Dates: start: 20140804, end: 20140815
  7. LIMAS [Concomitant]
     Active Substance: LITHIUM CARBONATE
     Dosage: 900 MG, QD
     Dates: start: 20140730, end: 20140820
  8. ZYPREXA [Concomitant]
     Active Substance: OLANZAPINE
     Indication: MANIA
     Dosage: 1.25 MG, QD
     Dates: start: 20140702, end: 20140715
  9. LIMAS [Concomitant]
     Active Substance: LITHIUM CARBONATE
     Indication: MANIA
     Dosage: 300 MG, BID
     Dates: start: 20140702, end: 20140715

REACTIONS (10)
  - Rash [Unknown]
  - Pyrexia [Unknown]
  - Cutaneous symptom [Unknown]
  - Generalised erythema [Unknown]
  - Drug reaction with eosinophilia and systemic symptoms [Recovered/Resolved]
  - Urticaria [Unknown]
  - Irritability [Unknown]
  - Lymphadenopathy [Unknown]
  - Epstein-Barr virus infection [Unknown]
  - Rash generalised [Unknown]

NARRATIVE: CASE EVENT DATE: 201407
